FAERS Safety Report 19401063 (Version 2)
Quarter: 2021Q2

REPORT INFORMATION
  Report Type: Spontaneous
  Country: SA (occurrence: SA)
  Receive Date: 20210611
  Receipt Date: 20210611
  Transmission Date: 20210717
  Serious: Yes (Death, Life-Threatening)
  Sender: FDA-Public Use
  Company Number: SA-ASTRAZENECA-2021A507168

PATIENT
  Age: 70 Year
  Sex: Female

DRUGS (5)
  1. BRILINTA [Suspect]
     Active Substance: TICAGRELOR
     Indication: MYOCARDIAL INFARCTION
     Dosage: 180.0MG UNKNOWN
     Route: 048
  2. ASPIRIN. [Concomitant]
     Active Substance: ASPIRIN
  3. CONCOR [Concomitant]
     Active Substance: BISOPROLOL FUMARATE
  4. CRESTOR [Concomitant]
     Active Substance: ROSUVASTATIN CALCIUM
  5. ACEI [Concomitant]

REACTIONS (4)
  - Cardiac arrest [Fatal]
  - Cardiogenic shock [Unknown]
  - Pericardial effusion [Unknown]
  - Cardiac tamponade [Unknown]
